FAERS Safety Report 24208532 (Version 1)
Quarter: 2024Q3

REPORT INFORMATION
  Report Type: Spontaneous
  Country: US (occurrence: US)
  Receive Date: 20240814
  Receipt Date: 20240814
  Transmission Date: 20241017
  Serious: No
  Sender: ROCHE
  Company Number: US-ROCHE-10000050414

PATIENT
  Age: 56 Year
  Sex: Male

DRUGS (3)
  1. COTELLIC [Interacting]
     Active Substance: COBIMETINIB
     Indication: Malignant melanoma
     Route: 048
  2. ZELBORAF [Interacting]
     Active Substance: VEMURAFENIB
     Indication: Product used for unknown indication
     Route: 065
  3. TIZANIDINE [Interacting]
     Active Substance: TIZANIDINE
     Indication: Product used for unknown indication
     Route: 065

REACTIONS (2)
  - Somnolence [Unknown]
  - Drug interaction [Unknown]
